FAERS Safety Report 18967469 (Version 1)
Quarter: 2021Q1

REPORT INFORMATION
  Report Type: Other
  Country: GB (occurrence: GB)
  Receive Date: 20210304
  Receipt Date: 20210304
  Transmission Date: 20210420
  Serious: Yes (Hospitalization)
  Sender: FDA-Public Use
  Company Number: GB-ASTELLAS-2021US007536

PATIENT
  Age: 80 Year
  Sex: Female

DRUGS (19)
  1. MEDIHONEY [Concomitant]
     Active Substance: HONEY
     Indication: PRODUCT USED FOR UNKNOWN INDICATION
     Dosage: UNK UNK, UNKNOWN FREQ. (USE IN ACCORDANCE WITH DN INSTRUCTION)
     Route: 065
     Dates: start: 20200728
  2. HYLO?FORTE [Concomitant]
     Active Substance: HYALURONATE SODIUM
     Indication: PRODUCT USED FOR UNKNOWN INDICATION
     Dosage: ONE DROP, 4 TIMES DAILY AS PER HOSP TO BOTH EYES
     Route: 065
     Dates: start: 20200828
  3. PARACETAMOL [Concomitant]
     Active Substance: ACETAMINOPHEN
     Indication: PRODUCT USED FOR UNKNOWN INDICATION
     Dosage: 2 DF, 4 TIMES DAILY (2 TABLETS EVERY 4?6 HRS)
     Route: 065
     Dates: start: 20201001
  4. BETMIGA [Suspect]
     Active Substance: MIRABEGRON
     Indication: PRODUCT USED FOR UNKNOWN INDICATION
     Dosage: 50 MG, ONCE DAILY, 30 TABLET
     Route: 065
     Dates: start: 20200925
  5. SERTRALINE [Concomitant]
     Active Substance: SERTRALINE HYDROCHLORIDE
     Indication: PRODUCT USED FOR UNKNOWN INDICATION
     Dosage: 100 MG, ONCE DAILY, (,28 TABLET )
     Route: 065
     Dates: start: 20200923
  6. METANIUM [TITANIUM DIOXIDE;TITANIUM PEROXIDE;TITANIUM SALICYLATE] [Concomitant]
     Indication: PRODUCT USED FOR UNKNOWN INDICATION
     Dosage: UNK UNK, UNKNOWN FREQ. (AS DIRECTED)
     Route: 065
  7. PYRIDOSTIGMINE BROMIDE. [Concomitant]
     Active Substance: PYRIDOSTIGMINE BROMIDE
     Indication: PRODUCT USED FOR UNKNOWN INDICATION
     Route: 065
     Dates: start: 20200921
  8. BISOPROLOL [Concomitant]
     Active Substance: BISOPROLOL
     Indication: PRODUCT USED FOR UNKNOWN INDICATION
     Route: 065
     Dates: start: 20200923
  9. CLOTRIMAZOLE. [Concomitant]
     Active Substance: CLOTRIMAZOLE
     Indication: PRODUCT USED FOR UNKNOWN INDICATION
     Dosage: UNK UNK, THRICE DAILY
     Route: 065
  10. CO?AMILOFRUSE [Concomitant]
     Active Substance: AMILORIDE\FUROSEMIDE
     Indication: PRODUCT USED FOR UNKNOWN INDICATION
     Dosage: 5MG/40MG, ONE TO BE TAKEN EACH MORNING,
     Route: 065
     Dates: start: 20200923
  11. FOLIC ACID. [Concomitant]
     Active Substance: FOLIC ACID
     Indication: PRODUCT USED FOR UNKNOWN INDICATION
     Dosage: 5 MG, ONCE DAILY (28 TABLET )
     Route: 065
     Dates: start: 20200925
  12. WARFARIN [Concomitant]
     Active Substance: WARFARIN
     Indication: ANTICOAGULANT THERAPY
     Dosage: 3 MG, UNKNOWN FREQ. (TAKE AS PRESCRIBED)
     Route: 065
     Dates: start: 20200928
  13. ATORVASTATIN [Concomitant]
     Active Substance: ATORVASTATIN
     Indication: PRODUCT USED FOR UNKNOWN INDICATION
     Dosage: 80 MG, ONCE DAILY (28 TABLET )
     Route: 065
     Dates: start: 20200923
  14. GABAPENTIN. [Concomitant]
     Active Substance: GABAPENTIN
     Indication: PRODUCT USED FOR UNKNOWN INDICATION
     Dosage: 300 MG, ONCE DAILY (1 AT NIGHT,28 CAPSULE )
     Route: 065
     Dates: start: 20200923
  15. MONOMIL XL [Concomitant]
     Active Substance: ISOSORBIDE MONONITRATE
     Indication: PRODUCT USED FOR UNKNOWN INDICATION
     Dosage: UNK UNK, ONCE DAILY (ONE AND A HALF TO BE TAKEN EACH MORNING)
     Route: 065
  16. DICLOFENAC DIETHYLAMMONIUM [Concomitant]
     Indication: PAIN
     Dosage: UNK UNK, THRICE DAILY (AS REQUIRED)
     Route: 065
     Dates: start: 20200728
  17. SALBUTAMOL [Concomitant]
     Active Substance: ALBUTEROL
     Indication: PRODUCT USED FOR UNKNOWN INDICATION
     Dosage: UNK UNK, 4 TIMES DAILY,(ONE OR TWO PUFFS TO BE INHALED FOUR TIMES A DAY WHEN REQUIRED,200 DOSE)
     Route: 050
     Dates: start: 20200923
  18. BETAHISTINE [Concomitant]
     Active Substance: BETAHISTINE
     Indication: PRODUCT USED FOR UNKNOWN INDICATION
     Dosage: 16 MG, THRICE DAILY (84 TABLET)
     Route: 065
     Dates: start: 20200923
  19. LANSOPRAZOLE. [Concomitant]
     Active Substance: LANSOPRAZOLE
     Indication: PRODUCT USED FOR UNKNOWN INDICATION
     Dosage: 30 MG, ONCE DAILY, EACH MORNING,(28 CAPSULE)
     Route: 065
     Dates: start: 20200923

REACTIONS (2)
  - Orthostatic hypotension [Recovered/Resolved]
  - Dizziness [Recovered/Resolved]
